FAERS Safety Report 5505973-1 (Version None)
Quarter: 2007Q4

REPORT INFORMATION
  Report Type: 
  Country: None (occurrence: None)
  Receive Date: 20071105
  Receipt Date: 20071025
  Transmission Date: 20080405
  Serious: Yes (Death, Hospitalization)
  Sender: FDA-Public Use
  Company Number: PHBS2007TW02872

PATIENT
  Sex: Male
  Weight: 67 kg

DRUGS (1)
  1. DIOVAN HCT [Suspect]
     Indication: HYPERTENSION
     Route: 048
     Dates: start: 20060722

REACTIONS (3)
  - CATARACT OPERATION [None]
  - INFECTION [None]
  - RENAL FAILURE [None]
